FAERS Safety Report 13850694 (Version 1)
Quarter: 2017Q3

REPORT INFORMATION
  Report Type: Spontaneous
  Country: US (occurrence: US)
  Receive Date: 20170810
  Receipt Date: 20170810
  Transmission Date: 20171127
  Serious: Yes (Other)
  Sender: FDA-Public Use
  Company Number: US-TEVA-794846ACC

PATIENT
  Age: 32 Year
  Sex: Female
  Weight: 71.28 kg

DRUGS (5)
  1. PARAGARD T 380A [Suspect]
     Active Substance: COPPER
     Indication: CONTRACEPTION
     Dates: start: 20170330
  2. LEXAPRO [Concomitant]
     Active Substance: ESCITALOPRAM OXALATE
  3. MULTIVITAMINS [Concomitant]
     Active Substance: VITAMINS
  4. VALIUM [Concomitant]
     Active Substance: DIAZEPAM
  5. COPAXONE INJECTION [Concomitant]

REACTIONS (1)
  - Device dislocation [Not Recovered/Not Resolved]

NARRATIVE: CASE EVENT DATE: 20170727
